FAERS Safety Report 5359442-2 (Version None)
Quarter: 2007Q2

REPORT INFORMATION
  Report Type: 
  Country: None (occurrence: None)
  Receive Date: 20070615
  Receipt Date: 20070606
  Transmission Date: 20071010
  Serious: Yes (Other)
  Sender: FDA-Public Use
  Company Number: GB-ABBOTT-07P-167-0367278-00

PATIENT
  Sex: Female

DRUGS (1)
  1. HUMIRA [Suspect]
     Indication: DRUG USE FOR UNKNOWN INDICATION
     Route: 058
     Dates: start: 20060421, end: 20070206

REACTIONS (3)
  - FOOT OPERATION [None]
  - HAEMATURIA [None]
  - POLLAKIURIA [None]
